FAERS Safety Report 13233861 (Version 2)
Quarter: 2017Q1

REPORT INFORMATION
  Report Type: Spontaneous
  Country: ZA (occurrence: ZA)
  Receive Date: 20170215
  Receipt Date: 20170221
  Transmission Date: 20170428
  Serious: Yes (Other)
  Sender: FDA-Public Use
  Company Number: ZA-ASTRAZENECA-2017SE15338

PATIENT
  Age: 41 Year
  Sex: Female

DRUGS (1)
  1. CASODEX [Suspect]
     Active Substance: BICALUTAMIDE
     Indication: ALOPECIA
     Route: 048
     Dates: start: 201612, end: 201702

REACTIONS (5)
  - Cystitis [Unknown]
  - Transient ischaemic attack [Recovered/Resolved]
  - Contraindicated product administered [Recovered/Resolved]
  - Product use issue [Recovered/Resolved]
  - Vaginal haemorrhage [Unknown]

NARRATIVE: CASE EVENT DATE: 201612
